FAERS Safety Report 15060673 (Version 1)
Quarter: 2018Q2

REPORT INFORMATION
  Report Type: Spontaneous
  Country: ES (occurrence: ES)
  Receive Date: 20180625
  Receipt Date: 20180625
  Transmission Date: 20180711
  Serious: Yes (Hospitalization)
  Sender: FDA-Public Use
  Company Number: ES-PFIZER INC-2018251671

PATIENT
  Age: 14 Month
  Sex: Female
  Weight: 9.5 kg

DRUGS (7)
  1. DAUNOBLASTINA [Suspect]
     Active Substance: DAUNORUBICIN
     Indication: ACUTE LYMPHOCYTIC LEUKAEMIA
     Dosage: 30 DAUNOBLASTIN, WEEKLY
     Route: 042
     Dates: start: 20180420, end: 20180427
  2. TIOGUANINA ASPEN [Suspect]
     Active Substance: THIOGUANINE ANHYDROUS
     Indication: ACUTE LYMPHOCYTIC LEUKAEMIA
     Dosage: 60 MG/M2, 1X/DAY
     Route: 048
     Dates: start: 20180420, end: 20180503
  3. SEPTRIN PAEDIATRIC [Concomitant]
     Active Substance: SULFAMETHOXAZOLE\TRIMETHOPRIM
     Dosage: 18 DF, WEEKLY
     Route: 048
     Dates: end: 20180503
  4. VINCRISTINA PFIZER [Suspect]
     Active Substance: VINCRISTINE
     Indication: ACUTE LYMPHOCYTIC LEUKAEMIA
     Dosage: 1.5 MG/M2, WEEKLY
     Route: 042
     Dates: start: 20180420, end: 20180427
  5. HYDROCORTISONE. [Concomitant]
     Active Substance: HYDROCORTISONE
     Dosage: 2.5 MG, 1X/DAY
     Route: 048
  6. DIFLUCAN [Concomitant]
     Active Substance: FLUCONAZOLE
     Dosage: 6 ML, 1X/DAY
     Route: 048
     Dates: start: 20180501
  7. CYTARABINE. [Suspect]
     Active Substance: CYTARABINE
     Indication: ACUTE LYMPHOCYTIC LEUKAEMIA
     Dosage: 75 MG/M2, CYCLIC
     Route: 042
     Dates: start: 20180421, end: 20180501

REACTIONS (1)
  - Venoocclusive liver disease [Recovering/Resolving]

NARRATIVE: CASE EVENT DATE: 20180502
